FAERS Safety Report 23873073 (Version 1)
Quarter: 2024Q2

REPORT INFORMATION
  Report Type: Spontaneous
  Country: US (occurrence: None)
  Receive Date: 20240517
  Receipt Date: 20240517
  Transmission Date: 20240715
  Serious: Yes (Hospitalization)
  Sender: FDA-Public Use
  Company Number: None

PATIENT
  Sex: Male

DRUGS (4)
  1. AMBRISENTAN [Suspect]
     Active Substance: AMBRISENTAN
     Indication: Pulmonary arterial hypertension
     Dosage: FREQUENCY : DAILY;?
     Route: 048
     Dates: start: 202108
  2. TOBRAMYCIN [Concomitant]
     Active Substance: TOBRAMYCIN\TOBRAMYCIN SULFATE
  3. UPTRAVI [Concomitant]
     Active Substance: SELEXIPAG
  4. TADALAFIL [Concomitant]
     Active Substance: TADALAFIL

REACTIONS (2)
  - Respiratory syncytial virus infection [None]
  - Therapeutic product effect incomplete [None]
